FAERS Safety Report 7672921-8 (Version None)
Quarter: 2011Q3

REPORT INFORMATION
  Report Type: 
  Country: None (occurrence: None)
  Receive Date: 20110809
  Receipt Date: 20110803
  Transmission Date: 20111222
  Serious: Yes (Hospitalization, Other)
  Sender: FDA-Public Use
  Company Number: PHEH2010US03485

PATIENT
  Sex: Female

DRUGS (7)
  1. FLEXERIL [Concomitant]
  2. ROBITUSSIN ^ROBINS^ [Concomitant]
  3. ZELNORM [Suspect]
     Dates: start: 20040101
  4. PREVACID [Concomitant]
  5. ZYRTEC [Concomitant]
  6. AUGMENTIN '125' [Concomitant]
  7. DARVOCET-N 50 [Concomitant]

REACTIONS (25)
  - CARDIAC DISORDER [None]
  - BRONCHITIS [None]
  - DIARRHOEA [None]
  - GASTROOESOPHAGEAL REFLUX DISEASE [None]
  - DIVERTICULUM OESOPHAGEAL [None]
  - COUGH [None]
  - DYSPNOEA [None]
  - GASTRITIS [None]
  - DYSPEPSIA [None]
  - COAGULOPATHY [None]
  - INJURY [None]
  - ARTHRALGIA [None]
  - DRY SKIN [None]
  - CHEST DISCOMFORT [None]
  - CARDIOLIPIN ANTIBODY POSITIVE [None]
  - MUSCLE STRAIN [None]
  - INFLUENZA LIKE ILLNESS [None]
  - CHEST PAIN [None]
  - SINUS CONGESTION [None]
  - MIGRAINE [None]
  - INSOMNIA [None]
  - OCCIPITAL NEURALGIA [None]
  - MUSCULOSKELETAL PAIN [None]
  - CHRONIC OBSTRUCTIVE PULMONARY DISEASE [None]
  - HELICOBACTER GASTRITIS [None]
